FAERS Safety Report 4972884-X (Version None)
Quarter: 2006Q2

REPORT INFORMATION
  Report Type: 
  Country: None (occurrence: None)
  Receive Date: 20060410
  Receipt Date: 20060328
  Transmission Date: 20061013
  Serious: Yes (Hospitalization)
  Sender: FDA-Public Use
  Company Number: 2006PV010994

PATIENT
  Age: 82 Year
  Sex: Male
  Weight: 108.8633 kg

DRUGS (7)
  1. BYETTA [Suspect]
     Indication: DIABETES MELLITUS NON-INSULIN-DEPENDENT
     Dosage: SEE IMAGE
     Route: 058
     Dates: start: 20060101, end: 20060313
  2. BYETTA [Suspect]
     Indication: DIABETES MELLITUS NON-INSULIN-DEPENDENT
     Dosage: SEE IMAGE
     Route: 058
     Dates: start: 20060322
  3. WARFARIN SODIUM [Concomitant]
  4. METHYLPREDNISOLONE [Concomitant]
  5. GLIPIZIDE [Concomitant]
  6. TYLENOL (CAPLET) [Concomitant]
  7. DIURETICS [Concomitant]

REACTIONS (6)
  - BACK PAIN [None]
  - COLON CANCER [None]
  - LOWER GASTROINTESTINAL HAEMORRHAGE [None]
  - RENAL DISORDER [None]
  - SKIN ULCER [None]
  - STAPHYLOCOCCAL INFECTION [None]
